FAERS Safety Report 8807825 (Version 4)
Quarter: 2012Q4

REPORT INFORMATION
  Report Type: 
  Country: US (occurrence: US)
  Receive Date: 20120925
  Receipt Date: 20121029
  Transmission Date: 20130627
  Serious: Yes (Hospitalization)
  Sender: FDA-Public Use
  Company Number: US-GLAXOSMITHKLINE-A0984032A

PATIENT
  Sex: Female

DRUGS (1)
  1. TYKERB [Suspect]
     Indication: PRODUCT USED FOR UNKNOWN INDICATION
     Dosage: 250MG Unknown
     Route: 065

REACTIONS (8)
  - Hospitalisation [Unknown]
  - Oedema peripheral [Unknown]
  - Flatulence [Unknown]
  - Dyspepsia [Unknown]
  - Rash [Unknown]
  - Skin exfoliation [Unknown]
  - Salivary hypersecretion [Unknown]
  - Blood potassium decreased [Unknown]
